FAERS Safety Report 10055980 (Version 2)
Quarter: 2014Q2

REPORT INFORMATION
  Report Type: Spontaneous
  Country: US (occurrence: US)
  Receive Date: 20140403
  Receipt Date: 20140410
  Transmission Date: 20141212
  Serious: Yes (Other)
  Sender: FDA-Public Use
  Company Number: US-PFIZER INC-2014089677

PATIENT
  Age: 58 Year
  Sex: Male

DRUGS (17)
  1. LYRICA [Suspect]
     Dosage: 200 MG, 2X/DAY
  2. FLURAZEPAM [Concomitant]
     Dosage: 30 MG, DAILY(AT BEDTIME AS NEDDED)
     Route: 048
  3. LIDODERM PATCH [Concomitant]
     Dosage: 700 MG, 2X/DAY(APPLY 2 PATCHES DAILY)
     Route: 062
  4. COLACE [Concomitant]
     Dosage: 100 MG, 2X/DAY(EVERYDAY AT BEDTIME AS NEEDED)
     Route: 048
  5. PRILOSEC [Concomitant]
     Dosage: 20 MG, 1X/DAY
     Route: 048
  6. ATORVASTATIN CALCIUM [Concomitant]
     Dosage: 80 MG, DAILY
     Route: 048
  7. ASPIRIN [Concomitant]
     Dosage: 81 MG, DAILY
     Route: 048
  8. HYDROCORTISONE ACETATE [Concomitant]
     Dosage: UNK
     Route: 061
  9. SOMA [Concomitant]
     Dosage: 350 MG, 4X/DAY
     Route: 048
  10. PENTOXIFYLLINE [Concomitant]
     Dosage: 400 MG, 3X/DAY
     Route: 048
  11. METFORMIN [Concomitant]
     Dosage: 850 MG, 3X/DAY
     Route: 048
  12. ALPHA LIPOIC ACID [Concomitant]
     Dosage: 600 MG, UNK
  13. GLIMEPIRIDE [Concomitant]
     Dosage: 1 MG, DAILY
     Route: 048
  14. DOXAZOSIN MESILATE [Concomitant]
     Dosage: 1 MG, 1X/DAY
     Route: 048
  15. CAPSAICIN [Concomitant]
     Dosage: UNK(3 TIMES EVERY DAY TO THE AFFECTED AREA)
     Route: 061
  16. OXYCODON [Concomitant]
     Dosage: 30 MG, UNK(7 TIMES PER DAY)
     Route: 048
  17. CLOTRIMAZOL 1% [Concomitant]
     Dosage: UNK(2 TIMES EVERY DAY TO AFFECTED AREA)
     Route: 061

REACTIONS (7)
  - Diabetes mellitus [Unknown]
  - Neuropathy peripheral [Unknown]
  - Hypoaesthesia [Unknown]
  - Peroneal nerve palsy [Unknown]
  - Skin lesion [Unknown]
  - Impaired healing [Unknown]
  - Memory impairment [Unknown]
